FAERS Safety Report 17769545 (Version 1)
Quarter: 2020Q2

REPORT INFORMATION
  Report Type: Spontaneous
  Country: US (occurrence: US)
  Receive Date: 20200512
  Receipt Date: 20200512
  Transmission Date: 20200714
  Serious: No
  Sender: FDA-Public Use
  Company Number: US-JNJFOC-20200511007

PATIENT
  Age: 38 Year
  Sex: Female

DRUGS (1)
  1. SIMPONI ARIA [Suspect]
     Active Substance: GOLIMUMAB
     Indication: RHEUMATOID ARTHRITIS
     Route: 042
     Dates: start: 202004

REACTIONS (6)
  - Paraesthesia [Unknown]
  - Muscular weakness [Unknown]
  - Discomfort [Recovered/Resolved]
  - Vision blurred [Unknown]
  - Autoscopy [Unknown]
  - Eye pain [Unknown]

NARRATIVE: CASE EVENT DATE: 202005
